FAERS Safety Report 5406258-4 (Version None)
Quarter: 2007Q3

REPORT INFORMATION
  Report Type: 
  Country: None (occurrence: None)
  Receive Date: 20070806
  Receipt Date: 20070723
  Transmission Date: 20080115
  Serious: Yes (Hospitalization)
  Sender: FDA-Public Use
  Company Number: TR-KINGPHARMUSA00001-K200700927

PATIENT

DRUGS (1)
  1. PENICILLIN G PROCAINE SUSPENSION [Suspect]
     Indication: PHARYNGOTONSILLITIS
     Dosage: 800,000 IU, UNK
     Route: 030

REACTIONS (21)
  - BLOOD LACTATE DEHYDROGENASE INCREASED [None]
  - BLOOD SODIUM DECREASED [None]
  - BURNING SENSATION [None]
  - CONJUNCTIVAL HYPERAEMIA [None]
  - CONJUNCTIVITIS [None]
  - DERMATITIS BULLOUS [None]
  - DYSPHAGIA [None]
  - EYE PRURITUS [None]
  - HEART RATE INCREASED [None]
  - HYPERSENSITIVITY [None]
  - MASTICATION DISORDER [None]
  - NIKOLSKY'S SIGN [None]
  - OEDEMA PERIPHERAL [None]
  - ORAL MUCOSA EROSION [None]
  - PAIN [None]
  - PHARYNGITIS [None]
  - PYREXIA [None]
  - RASH [None]
  - RASH MACULO-PAPULAR [None]
  - THROMBOSIS [None]
  - TOXIC EPIDERMAL NECROLYSIS [None]
